FAERS Safety Report 18026212 (Version 6)
Quarter: 2020Q4

REPORT INFORMATION
  Report Type: Report from Study
  Country: US (occurrence: US)
  Receive Date: 20200715
  Receipt Date: 20201125
  Transmission Date: 20210113
  Serious: Yes (Hospitalization)
  Sender: FDA-Public Use
  Company Number: US-DSJP-DSU-2019-143681

PATIENT
  Age: 49 Year
  Sex: Male
  Weight: 110.2 kg

DRUGS (8)
  1. PEXIDARTINIB [Suspect]
     Active Substance: PEXIDARTINIB
     Indication: TONGUE CANCER METASTATIC
     Dosage: 400 MG, BID
     Route: 048
     Dates: start: 201910, end: 202002
  2. PEXIDARTINIB [Suspect]
     Active Substance: PEXIDARTINIB
     Dosage: 200/MG, BID
     Route: 048
     Dates: start: 20191204, end: 20200827
  3. ASPIRIN                            /00002701/ [Concomitant]
     Active Substance: ASPIRIN
     Indication: PRODUCT USED FOR UNKNOWN INDICATION
     Dosage: 81 MG
     Route: 065
  4. PEPCID                             /00305201/ [Concomitant]
     Active Substance: ALUMINUM HYDROXIDE\MAGNESIUM CARBONATE
     Indication: PRODUCT USED FOR UNKNOWN INDICATION
     Dosage: 20 MG
     Route: 065
  5. PEXIDARTINIB [Suspect]
     Active Substance: PEXIDARTINIB
     Dosage: 400 MG, BID
     Route: 048
     Dates: start: 20191028
  6. PEXIDARTINIB [Suspect]
     Active Substance: PEXIDARTINIB
     Indication: BENIGN NEOPLASM OF SKIN
     Dosage: 400 MG, BID
     Route: 048
     Dates: start: 20191028
  7. PEXIDARTINIB [Suspect]
     Active Substance: PEXIDARTINIB
     Dosage: 400 MG, BID
     Route: 048
     Dates: start: 20191028
  8. LIPITOR [Concomitant]
     Active Substance: ATORVASTATIN CALCIUM
     Indication: PRODUCT USED FOR UNKNOWN INDICATION
     Dosage: 80 MG
     Route: 065

REACTIONS (41)
  - Dyspnoea [Not Recovered/Not Resolved]
  - Alanine aminotransferase increased [Not Recovered/Not Resolved]
  - Blood creatinine decreased [Unknown]
  - Decreased appetite [Unknown]
  - Flatulence [Unknown]
  - Dyspepsia [Unknown]
  - Blood sodium decreased [Recovered/Resolved]
  - Aspartate aminotransferase increased [Not Recovered/Not Resolved]
  - Tumour compression [Recovered/Resolved]
  - Hospitalisation [Recovered/Resolved]
  - Blood urea decreased [Unknown]
  - Eructation [Unknown]
  - Blood calcium increased [Not Recovered/Not Resolved]
  - Abdominal pain upper [Unknown]
  - Headache [Unknown]
  - Hepatic enzyme increased [Recovered/Resolved]
  - Fatigue [Not Recovered/Not Resolved]
  - Lacrimation increased [Not Recovered/Not Resolved]
  - Hair colour changes [Recovered/Resolved]
  - Vein collapse [Unknown]
  - Dizziness [Unknown]
  - Vomiting [Unknown]
  - Bone pain [Not Recovered/Not Resolved]
  - Renal impairment [Unknown]
  - Blood glucose decreased [Unknown]
  - Blood chloride decreased [Unknown]
  - Blood electrolytes decreased [Unknown]
  - Urine flow decreased [Recovered/Resolved]
  - Depression [Recovered/Resolved]
  - Dysgeusia [Not Recovered/Not Resolved]
  - Cough [Unknown]
  - Blood lactate dehydrogenase abnormal [Unknown]
  - Hiccups [Unknown]
  - Diarrhoea [Not Recovered/Not Resolved]
  - Feeling abnormal [Not Recovered/Not Resolved]
  - Off label use [Not Recovered/Not Resolved]
  - Swelling [Unknown]
  - Chest pain [Unknown]
  - Hypertension [Unknown]
  - Nausea [Unknown]
  - Dehydration [Recovered/Resolved]

NARRATIVE: CASE EVENT DATE: 2019
